FAERS Safety Report 5707989-9 (Version None)
Quarter: 2008Q2

REPORT INFORMATION
  Report Type: 
  Country: None (occurrence: None)
  Receive Date: 20080417
  Receipt Date: 20080414
  Transmission Date: 20081010
  Serious: Yes (Life-Threatening, Hospitalization)
  Sender: FDA-Public Use
  Company Number: PHHO2006DE05215

PATIENT
  Age: 65 Year
  Sex: Male

DRUGS (8)
  1. AMN107 [Suspect]
     Indication: CHRONIC MYELOID LEUKAEMIA
     Dosage: 400 MG, BID
     Route: 048
     Dates: start: 20040629
  2. LORZAAR [Concomitant]
     Indication: HYPERTENSION
  3. ASPIRIN [Concomitant]
     Indication: EXTRASYSTOLES
  4. PRAVASTATIN [Concomitant]
     Indication: HYPERCHOLESTEROLAEMIA
  5. NEBIVOLOL HCL [Concomitant]
     Indication: ACUTE CORONARY SYNDROME
  6. LOPIRIN [Concomitant]
     Indication: HYPERTENSION
  7. UNAT [Concomitant]
     Indication: HYPERTENSION
  8. OMACOR [Concomitant]
     Indication: PROPHYLAXIS

REACTIONS (11)
  - ANGINA PECTORIS [None]
  - ANGIOPLASTY [None]
  - ARTERIAL OCCLUSIVE DISEASE [None]
  - CARDIOVERSION [None]
  - CHEST PAIN [None]
  - CORONARY ANGIOPLASTY [None]
  - CORONARY ARTERY DISEASE [None]
  - CORONARY ARTERY STENOSIS [None]
  - FEMORAL ARTERIAL STENOSIS [None]
  - VASCULAR GRAFT [None]
  - VENTRICULAR FIBRILLATION [None]
